FAERS Safety Report 19614571 (Version 1)
Quarter: 2021Q3

REPORT INFORMATION
  Report Type: Spontaneous
  Country: US (occurrence: US)
  Receive Date: 20210727
  Receipt Date: 20210727
  Transmission Date: 20211014
  Serious: No
  Sender: FDA-Public Use
  Company Number: US-PFIZER INC-2021890245

PATIENT
  Age: 85 Year
  Sex: Male
  Weight: 88.9 kg

DRUGS (1)
  1. CIPROFLOXACIN. [Suspect]
     Active Substance: CIPROFLOXACIN
     Dosage: 500 MG, 2X/DAY
     Dates: end: 20210713

REACTIONS (2)
  - Blood creatinine increased [Not Recovered/Not Resolved]
  - Off label use [Unknown]
